FAERS Safety Report 23484161 (Version 1)
Quarter: 2024Q1

REPORT INFORMATION
  Report Type: Spontaneous
  Country: US (occurrence: US)
  Receive Date: 20240206
  Receipt Date: 20240206
  Transmission Date: 20240410
  Serious: No
  Sender: FDA-Public Use
  Company Number: US-JNJFOC-20240206726

PATIENT
  Sex: Female

DRUGS (8)
  1. IBUPROFEN [Suspect]
     Active Substance: IBUPROFEN
     Indication: Swelling face
     Route: 065
     Dates: start: 202401
  2. IBUPROFEN [Suspect]
     Active Substance: IBUPROFEN
     Indication: Skin burning sensation
  3. IBUPROFEN [Suspect]
     Active Substance: IBUPROFEN
     Indication: Skin exfoliation
  4. IBUPROFEN [Suspect]
     Active Substance: IBUPROFEN
     Indication: Eye swelling
  5. ALOE VERA LEAF [Concomitant]
     Active Substance: ALOE VERA LEAF
     Indication: Swelling face
     Route: 065
     Dates: start: 202401
  6. ALOE VERA LEAF [Concomitant]
     Active Substance: ALOE VERA LEAF
     Indication: Skin burning sensation
  7. ALOE VERA LEAF [Concomitant]
     Active Substance: ALOE VERA LEAF
     Indication: Skin exfoliation
  8. ALOE VERA LEAF [Concomitant]
     Active Substance: ALOE VERA LEAF
     Indication: Eye swelling

REACTIONS (2)
  - Product use in unapproved indication [Unknown]
  - Therapeutic response unexpected [Unknown]

NARRATIVE: CASE EVENT DATE: 20240101
